FAERS Safety Report 24850200 (Version 3)
Quarter: 2025Q1

REPORT INFORMATION
  Report Type: Spontaneous
  Country: CA (occurrence: CA)
  Receive Date: 20250116
  Receipt Date: 20250130
  Transmission Date: 20250409
  Serious: Yes (Hospitalization, Other)
  Sender: AMGEN
  Company Number: CA-AMGEN-CANSP2025004617

PATIENT
  Age: 69 Year
  Sex: Female
  Weight: 57 kg

DRUGS (2)
  1. PROLIA [Suspect]
     Active Substance: DENOSUMAB
     Indication: Bone disorder
     Dosage: 40 MILLIGRAM, Q6MO
     Route: 058
     Dates: start: 202009, end: 202409
  2. ANASTROZOLE [Suspect]
     Active Substance: ANASTROZOLE
     Indication: HER2 negative breast cancer
     Route: 048
     Dates: start: 20191211

REACTIONS (6)
  - Seizure like phenomena [Recovered/Resolved]
  - Hypocalcaemia [Recovered/Resolved with Sequelae]
  - Hypokalaemia [Unknown]
  - Hypomagnesaemia [Not Recovered/Not Resolved]
  - Tendon rupture [Not Recovered/Not Resolved]
  - Off label use [Unknown]

NARRATIVE: CASE EVENT DATE: 20200901
